FAERS Safety Report 6538141-5 (Version None)
Quarter: 2010Q1

REPORT INFORMATION
  Report Type: 
  Country: None (occurrence: None)
  Receive Date: 20100114
  Receipt Date: 20091218
  Transmission Date: 20100710
  Serious: No
  Sender: FDA-Public Use
  Company Number: US-BAYER-201010087BCC

PATIENT
  Age: 19 Year
  Sex: Female
  Weight: 59 kg

DRUGS (3)
  1. MIDOL [Suspect]
     Indication: PELVIC PAIN
     Dosage: UNIT DOSE: 220 MG
     Route: 048
     Dates: start: 20091128, end: 20091128
  2. PLAN B ONE-STEP [Suspect]
     Indication: POST COITAL CONTRACEPTION
     Dosage: TOTAL DAILY DOSE: 1.5 MG  UNIT DOSE: 1.5 MG
     Route: 048
     Dates: start: 20091101, end: 20091101
  3. PLAN B ONE-STEP [Suspect]
     Dosage: TOTAL DAILY DOSE: 1.5 MG  UNIT DOSE: 1.5 MG
     Route: 048
     Dates: start: 20091101, end: 20091101

REACTIONS (2)
  - DIZZINESS [None]
  - EATING DISORDER [None]
